FAERS Safety Report 10081650 (Version 2)
Quarter: 2014Q2

REPORT INFORMATION
  Report Type: Spontaneous
  Country: US (occurrence: US)
  Receive Date: 20140416
  Receipt Date: 20140527
  Transmission Date: 20141212
  Serious: Yes (Other)
  Sender: FDA-Public Use
  Company Number: US-BAYER-2014-052307

PATIENT
  Age: 14 Year
  Sex: Female
  Weight: 61.68 kg

DRUGS (5)
  1. ALKA-SELTZER PLUS SEVERE SINUS CONGESTION ALLERGY + COUGH LIQUID G [Suspect]
     Indication: NASAL CONGESTION
     Dosage: 2 DF, ONCE
     Route: 048
     Dates: start: 20140405, end: 20140405
  2. ALKA-SELTZER PLUS SEVERE SINUS CONGESTION ALLERGY + COUGH LIQUID G [Suspect]
     Indication: OROPHARYNGEAL PAIN
  3. ALKA-SELTZER PLUS SEVERE SINUS CONGESTION ALLERGY + COUGH LIQUID G [Suspect]
     Indication: NASOPHARYNGITIS
  4. YAZ [Concomitant]
  5. CLARITIN [Concomitant]

REACTIONS (13)
  - Convulsion [Recovered/Resolved]
  - Dizziness [Recovered/Resolved]
  - Hypoaesthesia [Recovered/Resolved]
  - Pallor [Recovered/Resolved]
  - Tremor [Recovered/Resolved]
  - Muscle twitching [Recovered/Resolved]
  - Head titubation [Recovered/Resolved]
  - Headache [Recovered/Resolved]
  - Muscle twitching [Recovered/Resolved]
  - Dyskinesia [Recovered/Resolved]
  - Muscle spasms [Recovered/Resolved]
  - Convulsion [Recovered/Resolved]
  - Lethargy [Recovered/Resolved]
